FAERS Safety Report 12273937 (Version 1)
Quarter: 2016Q2

REPORT INFORMATION
  Report Type: Spontaneous
  Country: US (occurrence: US)
  Receive Date: 20160415
  Receipt Date: 20160415
  Transmission Date: 20160815
  Serious: No
  Sender: FDA-Public Use
  Company Number: US-ALLERGAN-1505303US

PATIENT
  Age: 32 Year
  Sex: Female

DRUGS (1)
  1. LATISSE [Suspect]
     Active Substance: BIMATOPROST
     Indication: GROWTH OF EYELASHES
     Dosage: UNKNOWN
     Route: 061
     Dates: start: 201410, end: 20150302

REACTIONS (3)
  - Hordeolum [Unknown]
  - Wrong technique in product usage process [Unknown]
  - Chalazion [Not Recovered/Not Resolved]
